FAERS Safety Report 14332260 (Version 2)
Quarter: 2017Q4

REPORT INFORMATION
  Report Type: Spontaneous
  Country: FR (occurrence: FR)
  Receive Date: 20171228
  Receipt Date: 20171229
  Transmission Date: 20180321
  Serious: Yes (Hospitalization)
  Sender: FDA-Public Use
  Company Number: FR-ASTRAZENECA-2017SF31262

PATIENT
  Age: 56 Year
  Sex: Male
  Weight: 93 kg

DRUGS (16)
  1. FUROSEMIDE. [Concomitant]
     Active Substance: FUROSEMIDE
  2. BRILIQUE [Suspect]
     Active Substance: TICAGRELOR
     Indication: ACUTE CORONARY SYNDROME
     Route: 048
     Dates: start: 20171009, end: 20171014
  3. MYCOPHENOLATE MOFETIL. [Concomitant]
     Active Substance: MYCOPHENOLATE MOFETIL
  4. MYCOPHENOLATE MOFETIL. [Concomitant]
     Active Substance: MYCOPHENOLATE MOFETIL
  5. ACETYLSALICYLIC ACID [Concomitant]
     Active Substance: ASPIRIN
  6. ESOMEPRAZOLE [Concomitant]
     Active Substance: ESOMEPRAZOLE
  7. PREDNISONE. [Concomitant]
     Active Substance: PREDNISONE
     Dosage: 2.0DF UNKNOWN
  8. COLECALCIFEROL [Concomitant]
     Active Substance: CHOLECALCIFEROL
     Dosage: 100000 IU ONE VIAL THE 4TH WEEK OF THE MONTH
  9. BRILIQUE [Suspect]
     Active Substance: TICAGRELOR
     Indication: ACUTE CORONARY SYNDROME
     Route: 048
  10. NEORALA [Concomitant]
  11. ATENOLOL. [Concomitant]
     Active Substance: ATENOLOL
  12. AMLODIPINE [Concomitant]
     Active Substance: AMLODIPINE BESYLATE
  13. ALLOPURINOL. [Concomitant]
     Active Substance: ALLOPURINOL
  14. ATENOLOL. [Suspect]
     Active Substance: ATENOLOL
     Indication: ACUTE CORONARY SYNDROME
     Route: 048
     Dates: start: 20171009, end: 20171012
  15. URAPIDIL [Concomitant]
     Active Substance: URAPIDIL
  16. ATORVASTATIN [Concomitant]
     Active Substance: ATORVASTATIN

REACTIONS (2)
  - Sinoatrial block [Recovered/Resolved]
  - Cardiac arrest [Recovered/Resolved]

NARRATIVE: CASE EVENT DATE: 20171012
